FAERS Safety Report 24691498 (Version 6)
Quarter: 2025Q4

REPORT INFORMATION
  Report Type: Report from Study
  Country: EU (occurrence: EU)
  Receive Date: 20241203
  Receipt Date: 20251230
  Transmission Date: 20260117
  Serious: Yes (Death, Hospitalization, Other)
  Sender: MYLAN
  Company Number: EU-SA-SAC20230925001451

PATIENT
  Age: 75 Year
  Sex: Female
  Weight: 62.8 kg

DRUGS (170)
  1. DEXAMETHASONE [Suspect]
     Active Substance: DEXAMETHASONE
     Indication: Plasma cell myeloma refractory
     Dosage: 20 MILLIGRAM, QW
     Route: 065
     Dates: start: 20220107, end: 20220131
  2. DEXAMETHASONE [Suspect]
     Active Substance: DEXAMETHASONE
     Dosage: 20 MILLIGRAM, QW
     Dates: start: 20220107, end: 20220131
  3. DEXAMETHASONE [Suspect]
     Active Substance: DEXAMETHASONE
     Dosage: 20 MILLIGRAM, QW
     Dates: start: 20220107, end: 20220131
  4. DEXAMETHASONE [Suspect]
     Active Substance: DEXAMETHASONE
     Dosage: 20 MILLIGRAM, QW
     Route: 065
     Dates: start: 20220107, end: 20220131
  5. DEXAMETHASONE [Suspect]
     Active Substance: DEXAMETHASONE
     Dosage: 20 MILLIGRAM, QW
     Dates: start: 20220221, end: 20220320
  6. DEXAMETHASONE [Suspect]
     Active Substance: DEXAMETHASONE
     Dosage: 20 MILLIGRAM, QW
     Dates: start: 20220221, end: 20220320
  7. DEXAMETHASONE [Suspect]
     Active Substance: DEXAMETHASONE
     Dosage: 20 MILLIGRAM, QW
     Route: 065
     Dates: start: 20220221, end: 20220320
  8. DEXAMETHASONE [Suspect]
     Active Substance: DEXAMETHASONE
     Dosage: 20 MILLIGRAM, QW
     Route: 065
     Dates: start: 20220221, end: 20220320
  9. DEXAMETHASONE [Suspect]
     Active Substance: DEXAMETHASONE
     Dosage: 20 MILLIGRAM, QW
     Route: 065
     Dates: start: 20220321, end: 20220418
  10. DEXAMETHASONE [Suspect]
     Active Substance: DEXAMETHASONE
     Dosage: 20 MILLIGRAM, QW
     Dates: start: 20220321, end: 20220418
  11. DEXAMETHASONE [Suspect]
     Active Substance: DEXAMETHASONE
     Dosage: 20 MILLIGRAM, QW
     Dates: start: 20220321, end: 20220418
  12. DEXAMETHASONE [Suspect]
     Active Substance: DEXAMETHASONE
     Dosage: 20 MILLIGRAM, QW
     Route: 065
     Dates: start: 20220321, end: 20220418
  13. DEXAMETHASONE [Suspect]
     Active Substance: DEXAMETHASONE
     Dosage: 20 MILLIGRAM, QW
     Dates: start: 20220419, end: 20220515
  14. DEXAMETHASONE [Suspect]
     Active Substance: DEXAMETHASONE
     Dosage: 20 MILLIGRAM, QW
     Dates: start: 20220419, end: 20220515
  15. DEXAMETHASONE [Suspect]
     Active Substance: DEXAMETHASONE
     Dosage: 20 MILLIGRAM, QW
     Route: 065
     Dates: start: 20220419, end: 20220515
  16. DEXAMETHASONE [Suspect]
     Active Substance: DEXAMETHASONE
     Dosage: 20 MILLIGRAM, QW
     Route: 065
     Dates: start: 20220419, end: 20220515
  17. DEXAMETHASONE [Suspect]
     Active Substance: DEXAMETHASONE
     Dosage: 20 MILLIGRAM, QW
     Dates: start: 20220516, end: 20220613
  18. DEXAMETHASONE [Suspect]
     Active Substance: DEXAMETHASONE
     Dosage: 20 MILLIGRAM, QW
     Dates: start: 20220516, end: 20220613
  19. DEXAMETHASONE [Suspect]
     Active Substance: DEXAMETHASONE
     Dosage: 20 MILLIGRAM, QW
     Route: 065
     Dates: start: 20220516, end: 20220613
  20. DEXAMETHASONE [Suspect]
     Active Substance: DEXAMETHASONE
     Dosage: 20 MILLIGRAM, QW
     Route: 065
     Dates: start: 20220516, end: 20220613
  21. DEXAMETHASONE [Suspect]
     Active Substance: DEXAMETHASONE
     Dosage: 20 MILLIGRAM, QW
     Dates: start: 20220614, end: 20220710
  22. DEXAMETHASONE [Suspect]
     Active Substance: DEXAMETHASONE
     Dosage: 20 MILLIGRAM, QW
     Route: 065
     Dates: start: 20220614, end: 20220710
  23. DEXAMETHASONE [Suspect]
     Active Substance: DEXAMETHASONE
     Dosage: 20 MILLIGRAM, QW
     Dates: start: 20220614, end: 20220710
  24. DEXAMETHASONE [Suspect]
     Active Substance: DEXAMETHASONE
     Dosage: 20 MILLIGRAM, QW
     Route: 065
     Dates: start: 20220614, end: 20220710
  25. DEXAMETHASONE [Suspect]
     Active Substance: DEXAMETHASONE
     Dosage: 20 MILLIGRAM, QW
     Dates: start: 20220711, end: 20220807
  26. DEXAMETHASONE [Suspect]
     Active Substance: DEXAMETHASONE
     Dosage: 20 MILLIGRAM, QW
     Dates: start: 20220711, end: 20220807
  27. DEXAMETHASONE [Suspect]
     Active Substance: DEXAMETHASONE
     Dosage: 20 MILLIGRAM, QW
     Route: 065
     Dates: start: 20220711, end: 20220807
  28. DEXAMETHASONE [Suspect]
     Active Substance: DEXAMETHASONE
     Dosage: 20 MILLIGRAM, QW
     Route: 065
     Dates: start: 20220711, end: 20220807
  29. DEXAMETHASONE [Suspect]
     Active Substance: DEXAMETHASONE
     Dosage: 20 MILLIGRAM, QW
     Route: 065
     Dates: start: 20220808, end: 20220905
  30. DEXAMETHASONE [Suspect]
     Active Substance: DEXAMETHASONE
     Dosage: 20 MILLIGRAM, QW
     Dates: start: 20220808, end: 20220905
  31. DEXAMETHASONE [Suspect]
     Active Substance: DEXAMETHASONE
     Dosage: 20 MILLIGRAM, QW
     Dates: start: 20220808, end: 20220905
  32. DEXAMETHASONE [Suspect]
     Active Substance: DEXAMETHASONE
     Dosage: 20 MILLIGRAM, QW
     Route: 065
     Dates: start: 20220808, end: 20220905
  33. DEXAMETHASONE [Suspect]
     Active Substance: DEXAMETHASONE
     Dosage: 20 MILLIGRAM, QW
     Dates: start: 20230726, end: 20230824
  34. DEXAMETHASONE [Suspect]
     Active Substance: DEXAMETHASONE
     Dosage: 20 MILLIGRAM, QW
     Dates: start: 20230726, end: 20230824
  35. DEXAMETHASONE [Suspect]
     Active Substance: DEXAMETHASONE
     Dosage: 20 MILLIGRAM, QW
     Route: 065
     Dates: start: 20230726, end: 20230824
  36. DEXAMETHASONE [Suspect]
     Active Substance: DEXAMETHASONE
     Dosage: 20 MILLIGRAM, QW
     Route: 065
     Dates: start: 20230726, end: 20230824
  37. DEXAMETHASONE [Suspect]
     Active Substance: DEXAMETHASONE
     Dosage: 20 MILLIGRAM, QW
     Route: 065
     Dates: start: 20230619, end: 20230717
  38. DEXAMETHASONE [Suspect]
     Active Substance: DEXAMETHASONE
     Dosage: 20 MILLIGRAM, QW
     Dates: start: 20230619, end: 20230717
  39. DEXAMETHASONE [Suspect]
     Active Substance: DEXAMETHASONE
     Dosage: 20 MILLIGRAM, QW
     Dates: start: 20230619, end: 20230717
  40. DEXAMETHASONE [Suspect]
     Active Substance: DEXAMETHASONE
     Dosage: 20 MILLIGRAM, QW
     Route: 065
     Dates: start: 20230619, end: 20230717
  41. DEXAMETHASONE [Suspect]
     Active Substance: DEXAMETHASONE
     Dosage: 20 MILLIGRAM, QW
     Dates: start: 20230517, end: 20230614
  42. DEXAMETHASONE [Suspect]
     Active Substance: DEXAMETHASONE
     Dosage: 20 MILLIGRAM, QW
     Dates: start: 20230517, end: 20230614
  43. DEXAMETHASONE [Suspect]
     Active Substance: DEXAMETHASONE
     Dosage: 20 MILLIGRAM, QW
     Route: 065
     Dates: start: 20230517, end: 20230614
  44. DEXAMETHASONE [Suspect]
     Active Substance: DEXAMETHASONE
     Dosage: 20 MILLIGRAM, QW
     Route: 065
     Dates: start: 20230517, end: 20230614
  45. DEXAMETHASONE [Suspect]
     Active Substance: DEXAMETHASONE
     Dosage: 20 MILLIGRAM, QW
     Dates: start: 20230411, end: 20230509
  46. DEXAMETHASONE [Suspect]
     Active Substance: DEXAMETHASONE
     Dosage: 20 MILLIGRAM, QW
     Dates: start: 20230411, end: 20230509
  47. DEXAMETHASONE [Suspect]
     Active Substance: DEXAMETHASONE
     Dosage: 20 MILLIGRAM, QW
     Route: 065
     Dates: start: 20230411, end: 20230509
  48. DEXAMETHASONE [Suspect]
     Active Substance: DEXAMETHASONE
     Dosage: 20 MILLIGRAM, QW
     Route: 065
     Dates: start: 20230411, end: 20230509
  49. DEXAMETHASONE [Suspect]
     Active Substance: DEXAMETHASONE
     Dosage: 20 MILLIGRAM, QW
     Dates: start: 20230313, end: 20230410
  50. DEXAMETHASONE [Suspect]
     Active Substance: DEXAMETHASONE
     Dosage: 20 MILLIGRAM, QW
     Dates: start: 20230313, end: 20230410
  51. DEXAMETHASONE [Suspect]
     Active Substance: DEXAMETHASONE
     Dosage: 20 MILLIGRAM, QW
     Route: 065
     Dates: start: 20230313, end: 20230410
  52. DEXAMETHASONE [Suspect]
     Active Substance: DEXAMETHASONE
     Dosage: 20 MILLIGRAM, QW
     Route: 065
     Dates: start: 20230313, end: 20230410
  53. ISATUXIMAB [Suspect]
     Active Substance: ISATUXIMAB
     Indication: Plasma cell myeloma refractory
     Dosage: 630 MILLIGRAM, QW
     Dates: start: 20220107, end: 20220131
  54. ISATUXIMAB [Suspect]
     Active Substance: ISATUXIMAB
     Dosage: 630 MILLIGRAM, QW
     Dates: start: 20220107, end: 20220131
  55. ISATUXIMAB [Suspect]
     Active Substance: ISATUXIMAB
     Dosage: 630 MILLIGRAM, QW
     Route: 065
     Dates: start: 20220107, end: 20220131
  56. ISATUXIMAB [Suspect]
     Active Substance: ISATUXIMAB
     Dosage: 630 MILLIGRAM, QW
     Route: 065
     Dates: start: 20220107, end: 20220131
  57. ISATUXIMAB [Suspect]
     Active Substance: ISATUXIMAB
     Dosage: 630 MILLIGRAM, Q2W
     Dates: start: 20220221, end: 20220320
  58. ISATUXIMAB [Suspect]
     Active Substance: ISATUXIMAB
     Dosage: 630 MILLIGRAM, Q2W
     Dates: start: 20220221, end: 20220320
  59. ISATUXIMAB [Suspect]
     Active Substance: ISATUXIMAB
     Dosage: 630 MILLIGRAM, Q2W
     Route: 065
     Dates: start: 20220221, end: 20220320
  60. ISATUXIMAB [Suspect]
     Active Substance: ISATUXIMAB
     Dosage: 630 MILLIGRAM, Q2W
     Route: 065
     Dates: start: 20220221, end: 20220320
  61. ISATUXIMAB [Suspect]
     Active Substance: ISATUXIMAB
     Dosage: 630 MILLIGRAM, Q2W
     Dates: start: 20220321, end: 20220418
  62. ISATUXIMAB [Suspect]
     Active Substance: ISATUXIMAB
     Dosage: 630 MILLIGRAM, Q2W
     Dates: start: 20220321, end: 20220418
  63. ISATUXIMAB [Suspect]
     Active Substance: ISATUXIMAB
     Dosage: 630 MILLIGRAM, Q2W
     Route: 065
     Dates: start: 20220321, end: 20220418
  64. ISATUXIMAB [Suspect]
     Active Substance: ISATUXIMAB
     Dosage: 630 MILLIGRAM, Q2W
     Route: 065
     Dates: start: 20220321, end: 20220418
  65. ISATUXIMAB [Suspect]
     Active Substance: ISATUXIMAB
     Dosage: 630 MILLIGRAM, Q2W
     Dates: start: 20220419, end: 20220515
  66. ISATUXIMAB [Suspect]
     Active Substance: ISATUXIMAB
     Dosage: 630 MILLIGRAM, Q2W
     Dates: start: 20220419, end: 20220515
  67. ISATUXIMAB [Suspect]
     Active Substance: ISATUXIMAB
     Dosage: 630 MILLIGRAM, Q2W
     Route: 065
     Dates: start: 20220419, end: 20220515
  68. ISATUXIMAB [Suspect]
     Active Substance: ISATUXIMAB
     Dosage: 630 MILLIGRAM, Q2W
     Route: 065
     Dates: start: 20220419, end: 20220515
  69. ISATUXIMAB [Suspect]
     Active Substance: ISATUXIMAB
     Dosage: 630 MILLIGRAM, Q2W
     Dates: start: 20220516, end: 20220613
  70. ISATUXIMAB [Suspect]
     Active Substance: ISATUXIMAB
     Dosage: 630 MILLIGRAM, Q2W
     Dates: start: 20220516, end: 20220613
  71. ISATUXIMAB [Suspect]
     Active Substance: ISATUXIMAB
     Dosage: 630 MILLIGRAM, Q2W
     Dates: start: 20220614, end: 20220710
  72. ISATUXIMAB [Suspect]
     Active Substance: ISATUXIMAB
     Dosage: 630 MILLIGRAM, Q2W
     Dates: start: 20220614, end: 20220710
  73. ISATUXIMAB [Suspect]
     Active Substance: ISATUXIMAB
     Dosage: 630 MILLIGRAM, QW
     Dates: start: 20220711, end: 20220807
  74. ISATUXIMAB [Suspect]
     Active Substance: ISATUXIMAB
     Dosage: 630 MILLIGRAM, QW
     Dates: start: 20220711, end: 20220807
  75. ISATUXIMAB [Suspect]
     Active Substance: ISATUXIMAB
     Dosage: 630 MILLIGRAM, QW
     Route: 065
     Dates: start: 20220711, end: 20220807
  76. ISATUXIMAB [Suspect]
     Active Substance: ISATUXIMAB
     Dosage: 630 MILLIGRAM, QW
     Route: 065
     Dates: start: 20220711, end: 20220807
  77. ISATUXIMAB [Suspect]
     Active Substance: ISATUXIMAB
     Dosage: 700 MILLIGRAM, BIWEEKLY
     Dates: start: 20230726, end: 20230822
  78. ISATUXIMAB [Suspect]
     Active Substance: ISATUXIMAB
     Dosage: 700 MILLIGRAM, BIWEEKLY
     Dates: start: 20230726, end: 20230822
  79. ISATUXIMAB [Suspect]
     Active Substance: ISATUXIMAB
     Dosage: 700 MILLIGRAM, BIWEEKLY
     Route: 065
     Dates: start: 20230726, end: 20230822
  80. ISATUXIMAB [Suspect]
     Active Substance: ISATUXIMAB
     Dosage: 700 MILLIGRAM, BIWEEKLY
     Route: 065
     Dates: start: 20230726, end: 20230822
  81. ISATUXIMAB [Suspect]
     Active Substance: ISATUXIMAB
     Dosage: 700 MILLIGRAM, BIWEEKLY
     Dates: start: 20230619, end: 20230717
  82. ISATUXIMAB [Suspect]
     Active Substance: ISATUXIMAB
     Dosage: 700 MILLIGRAM, BIWEEKLY
     Route: 065
     Dates: start: 20230619, end: 20230717
  83. ISATUXIMAB [Suspect]
     Active Substance: ISATUXIMAB
     Dosage: 700 MILLIGRAM, BIWEEKLY
     Dates: start: 20230619, end: 20230717
  84. ISATUXIMAB [Suspect]
     Active Substance: ISATUXIMAB
     Dosage: 700 MILLIGRAM, BIWEEKLY
     Route: 065
     Dates: start: 20230619, end: 20230717
  85. ISATUXIMAB [Suspect]
     Active Substance: ISATUXIMAB
     Dosage: 700 MILLIGRAM, BIWEEKLY
     Dates: start: 20230517, end: 20230611
  86. ISATUXIMAB [Suspect]
     Active Substance: ISATUXIMAB
     Dosage: 700 MILLIGRAM, BIWEEKLY
     Dates: start: 20230517, end: 20230611
  87. ISATUXIMAB [Suspect]
     Active Substance: ISATUXIMAB
     Dosage: 700 MILLIGRAM, BIWEEKLY
     Dates: start: 20230411, end: 20230509
  88. ISATUXIMAB [Suspect]
     Active Substance: ISATUXIMAB
     Dosage: 700 MILLIGRAM, BIWEEKLY
     Route: 065
     Dates: start: 20230411, end: 20230509
  89. ISATUXIMAB [Suspect]
     Active Substance: ISATUXIMAB
     Dosage: 700 MILLIGRAM, BIWEEKLY
     Route: 065
     Dates: start: 20230411, end: 20230509
  90. ISATUXIMAB [Suspect]
     Active Substance: ISATUXIMAB
     Dosage: 700 MILLIGRAM, BIWEEKLY
     Dates: start: 20230411, end: 20230509
  91. ISATUXIMAB [Suspect]
     Active Substance: ISATUXIMAB
     Dosage: 700 MILLIGRAM, BIWEEKLY
     Dates: start: 20230313, end: 20230410
  92. ISATUXIMAB [Suspect]
     Active Substance: ISATUXIMAB
     Dosage: 700 MILLIGRAM, BIWEEKLY
     Dates: start: 20230313, end: 20230410
  93. ISATUXIMAB [Suspect]
     Active Substance: ISATUXIMAB
     Dosage: 700 MILLIGRAM, BIWEEKLY
     Route: 065
     Dates: start: 20230313, end: 20230410
  94. ISATUXIMAB [Suspect]
     Active Substance: ISATUXIMAB
     Dosage: 700 MILLIGRAM, BIWEEKLY
     Route: 065
     Dates: start: 20230313, end: 20230410
  95. ISATUXIMAB [Suspect]
     Active Substance: ISATUXIMAB
     Dosage: 720 MILLIGRAM, BIWEEKLY
     Route: 065
     Dates: start: 20230824, end: 20230907
  96. ISATUXIMAB [Suspect]
     Active Substance: ISATUXIMAB
     Dosage: 720 MILLIGRAM, BIWEEKLY
     Dates: start: 20230824, end: 20230907
  97. ISATUXIMAB [Suspect]
     Active Substance: ISATUXIMAB
     Dosage: 720 MILLIGRAM, BIWEEKLY
     Dates: start: 20230824, end: 20230907
  98. ISATUXIMAB [Suspect]
     Active Substance: ISATUXIMAB
     Dosage: 720 MILLIGRAM, BIWEEKLY
     Route: 065
     Dates: start: 20230824, end: 20230907
  99. POMALIDOMIDE [Suspect]
     Active Substance: POMALIDOMIDE
     Indication: Plasma cell myeloma refractory
     Dosage: 2 MILLIGRAM, QD
     Dates: start: 20220107, end: 20220124
  100. POMALIDOMIDE [Suspect]
     Active Substance: POMALIDOMIDE
     Dosage: 2 MILLIGRAM, QD
     Dates: start: 20220107, end: 20220124
  101. POMALIDOMIDE [Suspect]
     Active Substance: POMALIDOMIDE
     Dosage: 2 MILLIGRAM, QD
     Route: 065
     Dates: start: 20220107, end: 20220124
  102. POMALIDOMIDE [Suspect]
     Active Substance: POMALIDOMIDE
     Dosage: 2 MILLIGRAM, QD
     Route: 065
     Dates: start: 20220107, end: 20220124
  103. POMALIDOMIDE [Suspect]
     Active Substance: POMALIDOMIDE
     Dosage: 2 MILLIGRAM, QD
     Dates: start: 20220221, end: 20220320
  104. POMALIDOMIDE [Suspect]
     Active Substance: POMALIDOMIDE
     Dosage: 2 MILLIGRAM, QD
     Dates: start: 20220221, end: 20220320
  105. POMALIDOMIDE [Suspect]
     Active Substance: POMALIDOMIDE
     Dosage: 2 MILLIGRAM, QD
     Route: 065
     Dates: start: 20220221, end: 20220320
  106. POMALIDOMIDE [Suspect]
     Active Substance: POMALIDOMIDE
     Dosage: 2 MILLIGRAM, QD
     Route: 065
     Dates: start: 20220221, end: 20220320
  107. POMALIDOMIDE [Suspect]
     Active Substance: POMALIDOMIDE
     Dosage: 2 MILLIGRAM, QD
     Route: 065
     Dates: start: 20220321, end: 20220418
  108. POMALIDOMIDE [Suspect]
     Active Substance: POMALIDOMIDE
     Dosage: 2 MILLIGRAM, QD
     Dates: start: 20220321, end: 20220418
  109. POMALIDOMIDE [Suspect]
     Active Substance: POMALIDOMIDE
     Dosage: 2 MILLIGRAM, QD
     Dates: start: 20220321, end: 20220418
  110. POMALIDOMIDE [Suspect]
     Active Substance: POMALIDOMIDE
     Dosage: 2 MILLIGRAM, QD
     Route: 065
     Dates: start: 20220321, end: 20220418
  111. POMALIDOMIDE [Suspect]
     Active Substance: POMALIDOMIDE
     Dosage: 2 MILLIGRAM, QD
     Dates: start: 20220419, end: 20220515
  112. POMALIDOMIDE [Suspect]
     Active Substance: POMALIDOMIDE
     Dosage: 2 MILLIGRAM, QD
     Dates: start: 20220419, end: 20220515
  113. POMALIDOMIDE [Suspect]
     Active Substance: POMALIDOMIDE
     Dosage: 2 MILLIGRAM, QD
     Route: 065
     Dates: start: 20220419, end: 20220515
  114. POMALIDOMIDE [Suspect]
     Active Substance: POMALIDOMIDE
     Dosage: 2 MILLIGRAM, QD
     Route: 065
     Dates: start: 20220419, end: 20220515
  115. POMALIDOMIDE [Suspect]
     Active Substance: POMALIDOMIDE
     Dosage: 4 MILLIGRAM, QD
     Dates: start: 20220516, end: 20220613
  116. POMALIDOMIDE [Suspect]
     Active Substance: POMALIDOMIDE
     Dosage: 4 MILLIGRAM, QD
     Dates: start: 20220516, end: 20220613
  117. POMALIDOMIDE [Suspect]
     Active Substance: POMALIDOMIDE
     Dosage: 4 MILLIGRAM, QD
     Route: 065
     Dates: start: 20220516, end: 20220613
  118. POMALIDOMIDE [Suspect]
     Active Substance: POMALIDOMIDE
     Dosage: 4 MILLIGRAM, QD
     Route: 065
     Dates: start: 20220516, end: 20220613
  119. POMALIDOMIDE [Suspect]
     Active Substance: POMALIDOMIDE
     Dosage: 4 MILLIGRAM, QD
     Dates: start: 20220614, end: 20220710
  120. POMALIDOMIDE [Suspect]
     Active Substance: POMALIDOMIDE
     Dosage: 4 MILLIGRAM, QD
     Route: 065
     Dates: start: 20220614, end: 20220710
  121. POMALIDOMIDE [Suspect]
     Active Substance: POMALIDOMIDE
     Dosage: 4 MILLIGRAM, QD
     Dates: start: 20220614, end: 20220710
  122. POMALIDOMIDE [Suspect]
     Active Substance: POMALIDOMIDE
     Dosage: 4 MILLIGRAM, QD
     Route: 065
     Dates: start: 20220614, end: 20220710
  123. POMALIDOMIDE [Suspect]
     Active Substance: POMALIDOMIDE
     Dosage: 4 MILLIGRAM, QD
     Route: 065
     Dates: start: 20220711, end: 20220807
  124. POMALIDOMIDE [Suspect]
     Active Substance: POMALIDOMIDE
     Dosage: 4 MILLIGRAM, QD
     Dates: start: 20220711, end: 20220807
  125. POMALIDOMIDE [Suspect]
     Active Substance: POMALIDOMIDE
     Dosage: 4 MILLIGRAM, QD
     Dates: start: 20220711, end: 20220807
  126. POMALIDOMIDE [Suspect]
     Active Substance: POMALIDOMIDE
     Dosage: 4 MILLIGRAM, QD
     Route: 065
     Dates: start: 20220711, end: 20220807
  127. POMALIDOMIDE [Suspect]
     Active Substance: POMALIDOMIDE
     Dosage: 4 MILLIGRAM, QD
     Dates: start: 20220808, end: 20230905
  128. POMALIDOMIDE [Suspect]
     Active Substance: POMALIDOMIDE
     Dosage: 4 MILLIGRAM, QD
     Dates: start: 20220808, end: 20230905
  129. POMALIDOMIDE [Suspect]
     Active Substance: POMALIDOMIDE
     Dosage: 4 MILLIGRAM, QD
     Route: 065
     Dates: start: 20220808, end: 20230905
  130. POMALIDOMIDE [Suspect]
     Active Substance: POMALIDOMIDE
     Dosage: 4 MILLIGRAM, QD
     Route: 065
     Dates: start: 20220808, end: 20230905
  131. POMALIDOMIDE [Suspect]
     Active Substance: POMALIDOMIDE
     Dosage: 3 MILLIGRAM, QD
     Dates: start: 20230726, end: 20230823
  132. POMALIDOMIDE [Suspect]
     Active Substance: POMALIDOMIDE
     Dosage: 3 MILLIGRAM, QD
     Dates: start: 20230726, end: 20230823
  133. POMALIDOMIDE [Suspect]
     Active Substance: POMALIDOMIDE
     Dosage: 3 MILLIGRAM, QD
     Route: 065
     Dates: start: 20230726, end: 20230823
  134. POMALIDOMIDE [Suspect]
     Active Substance: POMALIDOMIDE
     Dosage: 3 MILLIGRAM, QD
     Route: 065
     Dates: start: 20230726, end: 20230823
  135. POMALIDOMIDE [Suspect]
     Active Substance: POMALIDOMIDE
     Dosage: 3 MILLIGRAM, QD
     Dates: start: 20230619, end: 20230716
  136. POMALIDOMIDE [Suspect]
     Active Substance: POMALIDOMIDE
     Dosage: 3 MILLIGRAM, QD
     Route: 065
     Dates: start: 20230619, end: 20230716
  137. POMALIDOMIDE [Suspect]
     Active Substance: POMALIDOMIDE
     Dosage: 3 MILLIGRAM, QD
     Dates: start: 20230619, end: 20230716
  138. POMALIDOMIDE [Suspect]
     Active Substance: POMALIDOMIDE
     Dosage: 3 MILLIGRAM, QD
     Route: 065
     Dates: start: 20230619, end: 20230716
  139. POMALIDOMIDE [Suspect]
     Active Substance: POMALIDOMIDE
     Dosage: 3 MILLIGRAM, QD
     Dates: start: 20230517, end: 20230614
  140. POMALIDOMIDE [Suspect]
     Active Substance: POMALIDOMIDE
     Dosage: 3 MILLIGRAM, QD
     Dates: start: 20230517, end: 20230614
  141. POMALIDOMIDE [Suspect]
     Active Substance: POMALIDOMIDE
     Dosage: 3 MILLIGRAM, QD
     Route: 065
     Dates: start: 20230517, end: 20230614
  142. POMALIDOMIDE [Suspect]
     Active Substance: POMALIDOMIDE
     Dosage: 3 MILLIGRAM, QD
     Route: 065
     Dates: start: 20230517, end: 20230614
  143. POMALIDOMIDE [Suspect]
     Active Substance: POMALIDOMIDE
     Dosage: 3 MILLIGRAM, QD
     Dates: start: 20230411, end: 20230509
  144. POMALIDOMIDE [Suspect]
     Active Substance: POMALIDOMIDE
     Dosage: 3 MILLIGRAM, QD
     Dates: start: 20230411, end: 20230509
  145. POMALIDOMIDE [Suspect]
     Active Substance: POMALIDOMIDE
     Dosage: 3 MILLIGRAM, QD
     Route: 065
     Dates: start: 20230411, end: 20230509
  146. POMALIDOMIDE [Suspect]
     Active Substance: POMALIDOMIDE
     Dosage: 3 MILLIGRAM, QD
     Route: 065
     Dates: start: 20230411, end: 20230509
  147. POMALIDOMIDE [Suspect]
     Active Substance: POMALIDOMIDE
     Dosage: 3 MILLIGRAM, QD
     Dates: start: 20230313, end: 20230410
  148. POMALIDOMIDE [Suspect]
     Active Substance: POMALIDOMIDE
     Dosage: 3 MILLIGRAM, QD
     Dates: start: 20230313, end: 20230410
  149. POMALIDOMIDE [Suspect]
     Active Substance: POMALIDOMIDE
     Dosage: 3 MILLIGRAM, QD
     Route: 065
     Dates: start: 20230313, end: 20230410
  150. POMALIDOMIDE [Suspect]
     Active Substance: POMALIDOMIDE
     Dosage: 3 MILLIGRAM, QD
     Route: 065
     Dates: start: 20230313, end: 20230410
  151. POMALIDOMIDE [Suspect]
     Active Substance: POMALIDOMIDE
     Dosage: 3 MILLIGRAM, QD
     Dates: start: 20230824, end: 20230907
  152. POMALIDOMIDE [Suspect]
     Active Substance: POMALIDOMIDE
     Dosage: 3 MILLIGRAM, QD
     Dates: start: 20230824, end: 20230907
  153. POMALIDOMIDE [Suspect]
     Active Substance: POMALIDOMIDE
     Dosage: 3 MILLIGRAM, QD
     Route: 065
     Dates: start: 20230824, end: 20230907
  154. POMALIDOMIDE [Suspect]
     Active Substance: POMALIDOMIDE
     Dosage: 3 MILLIGRAM, QD
     Route: 065
     Dates: start: 20230824, end: 20230907
  155. DEXCHLORPHENIRAMINE [Concomitant]
     Active Substance: DEXCHLORPHENIRAMINE
     Dosage: UNK
  156. DEXCHLORPHENIRAMINE [Concomitant]
     Active Substance: DEXCHLORPHENIRAMINE
     Dosage: UNK
     Route: 065
  157. DEXCHLORPHENIRAMINE [Concomitant]
     Active Substance: DEXCHLORPHENIRAMINE
     Dosage: UNK
     Route: 065
  158. DEXCHLORPHENIRAMINE [Concomitant]
     Active Substance: DEXCHLORPHENIRAMINE
     Dosage: UNK
  159. ACETAMINOPHEN [Concomitant]
     Active Substance: ACETAMINOPHEN
     Dosage: UNK
  160. ACETAMINOPHEN [Concomitant]
     Active Substance: ACETAMINOPHEN
     Dosage: UNK
     Route: 065
  161. ACETAMINOPHEN [Concomitant]
     Active Substance: ACETAMINOPHEN
     Dosage: UNK
     Route: 065
  162. ACETAMINOPHEN [Concomitant]
     Active Substance: ACETAMINOPHEN
     Dosage: UNK
  163. BACTRIM [Concomitant]
     Active Substance: SULFAMETHOXAZOLE\TRIMETHOPRIM
     Dosage: UNK
  164. BACTRIM [Concomitant]
     Active Substance: SULFAMETHOXAZOLE\TRIMETHOPRIM
     Dosage: UNK
     Route: 065
  165. BACTRIM [Concomitant]
     Active Substance: SULFAMETHOXAZOLE\TRIMETHOPRIM
     Dosage: UNK
     Route: 065
  166. BACTRIM [Concomitant]
     Active Substance: SULFAMETHOXAZOLE\TRIMETHOPRIM
     Dosage: UNK
  167. RACECADOTRIL [Concomitant]
     Active Substance: RACECADOTRIL
     Dosage: UNK
     Dates: start: 20220321, end: 20230821
  168. RACECADOTRIL [Concomitant]
     Active Substance: RACECADOTRIL
     Dosage: UNK
     Route: 065
     Dates: start: 20220321, end: 20230821
  169. RACECADOTRIL [Concomitant]
     Active Substance: RACECADOTRIL
     Dosage: UNK
     Route: 065
     Dates: start: 20220321, end: 20230821
  170. RACECADOTRIL [Concomitant]
     Active Substance: RACECADOTRIL
     Dosage: UNK
     Dates: start: 20220321, end: 20230821

REACTIONS (11)
  - Colitis ischaemic [Fatal]
  - General physical health deterioration [Fatal]
  - Septic shock [Fatal]
  - Shock [Fatal]
  - Multiple organ dysfunction syndrome [Fatal]
  - Diarrhoea [Recovered/Resolved with Sequelae]
  - Renal failure [Not Recovered/Not Resolved]
  - Bacterial colitis [Recovered/Resolved with Sequelae]
  - Retinal vein occlusion [Recovered/Resolved]
  - Intestinal dilatation [Recovered/Resolved]
  - Anaemia [Recovered/Resolved]

NARRATIVE: CASE EVENT DATE: 20220311
